FAERS Safety Report 6457835-3 (Version None)
Quarter: 2009Q4

REPORT INFORMATION
  Report Type: 
  Country: None (occurrence: None)
  Receive Date: 20091125
  Receipt Date: 20091119
  Transmission Date: 20100525
  Serious: Yes (Other)
  Sender: FDA-Public Use
  Company Number: CA-AMGEN-KDL373339

PATIENT
  Sex: Female
  Weight: 77.2 kg

DRUGS (4)
  1. ENBREL [Suspect]
     Indication: RHEUMATOID ARTHRITIS
     Dates: start: 20050314, end: 20080401
  2. ACCURETIC [Concomitant]
  3. MOBICOX [Concomitant]
  4. HUMIRA [Concomitant]

REACTIONS (2)
  - PAIN IN EXTREMITY [None]
  - THERAPEUTIC RESPONSE DECREASED [None]
